FAERS Safety Report 5978607-X (Version None)
Quarter: 2008Q4

REPORT INFORMATION
  Report Type: 
  Country: None (occurrence: None)
  Receive Date: 20081204
  Receipt Date: 20081202
  Transmission Date: 20090506
  Serious: Yes (Hospitalization)
  Sender: FDA-Public Use
  Company Number: B0548872A

PATIENT
  Sex: Female
  Weight: 66.5 kg

DRUGS (2)
  1. TOPOTECAN [Suspect]
     Route: 042
  2. CARBOPLATIN [Suspect]
     Route: 042

REACTIONS (2)
  - PAIN [None]
  - VIRAL INFECTION [None]
